FAERS Safety Report 20629658 (Version 1)
Quarter: 2022Q1

REPORT INFORMATION
  Report Type: Spontaneous
  Country: PH (occurrence: PH)
  Receive Date: 20220323
  Receipt Date: 20220323
  Transmission Date: 20220423
  Serious: Yes (Hospitalization)
  Sender: FDA-Public Use
  Company Number: PH-BoehringerIngelheim-2022-BI-159532

PATIENT

DRUGS (1)
  1. ALTEPLASE [Suspect]
     Active Substance: ALTEPLASE
     Indication: Product used for unknown indication
     Dosage: 3 UNITS
     Route: 065

REACTIONS (9)
  - Acute respiratory failure [Unknown]
  - Pulmonary embolism [Unknown]
  - Hypercoagulation [Unknown]
  - Myocarditis [Unknown]
  - Gastritis [Unknown]
  - Thrombolysis [Unknown]
  - COVID-19 pneumonia [Unknown]
  - Acute myocardial infarction [Unknown]
  - Upper gastrointestinal haemorrhage [Unknown]
